FAERS Safety Report 8783112 (Version 1)
Quarter: 2012Q4

REPORT INFORMATION
  Report Type: Report from Study
  Country: US (occurrence: US)
  Receive Date: 20120913
  Receipt Date: 20120913
  Transmission Date: 20130627
  Serious: Yes (Hospitalization)
  Sender: FDA-Public Use
  Company Number: US-GILEAD-2012-0060882

PATIENT
  Age: 25 Year
  Sex: Male

DRUGS (2)
  1. VITAMINS [Concomitant]
     Indication: MEDICAL DIET
     Dosage: UNK
     Dates: start: 20100501
  2. .ALPHA.-TOCOPHEROL\VITAMIN B [Concomitant]
     Indication: MEDICAL DIET
     Dosage: UNK
     Dates: start: 20100501

REACTIONS (1)
  - Suicidal ideation [Recovered/Resolved]
